FAERS Safety Report 6531736-4 (Version None)
Quarter: 2010Q1

REPORT INFORMATION
  Report Type: 
  Country: None (occurrence: None)
  Receive Date: 20100108
  Receipt Date: 20091231
  Transmission Date: 20100710
  Serious: Yes (Hospitalization, Other)
  Sender: FDA-Public Use
  Company Number: US-ABBOTT-10P-163-0617268-00

PATIENT
  Sex: Female
  Weight: 63.56 kg

DRUGS (7)
  1. HUMIRA [Suspect]
     Indication: RHEUMATOID ARTHRITIS
     Dates: start: 20091217
  2. DILANTIN [Concomitant]
     Indication: CONVULSION PROPHYLAXIS
  3. TOPIRAMATE [Concomitant]
     Indication: CONVULSION PROPHYLAXIS
  4. LORAZEPAM [Concomitant]
     Indication: ANXIETY
  5. TRAZODONE HYDROCHLORIDE [Concomitant]
     Indication: DRUG USE FOR UNKNOWN INDICATION
  6. GLIPIZIDE [Concomitant]
     Indication: DRUG USE FOR UNKNOWN INDICATION
  7. VASOTEC [Concomitant]
     Indication: HYPERTENSION
     Dosage: UNKNOWN

REACTIONS (7)
  - ABDOMINAL PAIN [None]
  - APNOEA [None]
  - APPENDICITIS [None]
  - ARTHRALGIA [None]
  - BODY TEMPERATURE DECREASED [None]
  - CHEST PAIN [None]
  - HYPERSENSITIVITY [None]
